FAERS Safety Report 9380092 (Version 2)
Quarter: 2013Q3

REPORT INFORMATION
  Report Type: Spontaneous
  Country: US (occurrence: US)
  Receive Date: 20130702
  Receipt Date: 20130805
  Transmission Date: 20140515
  Serious: Yes (Congenital Anomaly)
  Sender: FDA-Public Use
  Company Number: US-ABBOTT-13P-163-1110506-00

PATIENT
  Sex: Female

DRUGS (3)
  1. SYNTHROID [Suspect]
     Indication: EXPOSURE VIA BODY FLUID
     Route: 050
  2. SYNTHROID [Suspect]
     Indication: FOETAL EXPOSURE DURING PREGNANCY
  3. SYNTHROID [Suspect]
     Indication: CONGENITAL HYPOTHYROIDISM
     Dosage: PILL IS CRUSHED THEN INSERTED IN SYRINGE WITH WATER
     Route: 048

REACTIONS (3)
  - Congenital hypothyroidism [Unknown]
  - Paternal drugs affecting foetus [Unknown]
  - Foetal exposure during pregnancy [Unknown]
